FAERS Safety Report 11352994 (Version 1)
Quarter: 2015Q3

REPORT INFORMATION
  Report Type: Spontaneous
  Country: US (occurrence: US)
  Receive Date: 20150807
  Receipt Date: 20150807
  Transmission Date: 20151125
  Serious: No
  Sender: FDA-Public Use
  Company Number: US-JNJFOC-20150706825

PATIENT
  Age: 56 Year
  Sex: Male
  Weight: 72.58 kg

DRUGS (3)
  1. MENS ROGAINE EXTRA STRENGTH [Suspect]
     Active Substance: MINOXIDIL
     Indication: ALOPECIA
     Dosage: 1/2 DOLLAR COIN AMOUNT
     Route: 061
     Dates: start: 20150705, end: 20150707
  2. ZANTAC [Concomitant]
     Active Substance: RANITIDINE HYDROCHLORIDE
     Indication: GASTRIC DISORDER
     Dosage: 1-2X DAILLY, FEW YEARS
     Route: 065
  3. MENS ROGAINE EXTRA STRENGTH [Suspect]
     Active Substance: MINOXIDIL
     Indication: ALOPECIA
     Dosage: 1/2 DOLLAR COIN AMOUNT, USING FOR A YEAR AND A HALF
     Route: 061

REACTIONS (2)
  - Dandruff [Not Recovered/Not Resolved]
  - Rash [Not Recovered/Not Resolved]
